FAERS Safety Report 6047229-7 (Version None)
Quarter: 2009Q1

REPORT INFORMATION
  Report Type: 
  Country: None (occurrence: None)
  Receive Date: 20090122
  Receipt Date: 20090112
  Transmission Date: 20090719
  Serious: Yes (Hospitalization)
  Sender: FDA-Public Use
  Company Number: US-WYE-H07643009

PATIENT
  Age: 18 Year
  Sex: Female

DRUGS (11)
  1. RAPAMUNE [Suspect]
     Indication: PROPHYLAXIS AGAINST TRANSPLANT REJECTION
     Dosage: 2MG IN THE AM AND 1MG IN THE PM
     Route: 048
     Dates: start: 20080501, end: 20090101
  2. NIFEDIPINE [Concomitant]
     Indication: HYPERTENSION
  3. ZENAPAX [Concomitant]
     Indication: GRAFT VERSUS HOST DISEASE
  4. CIDOFOVIR [Concomitant]
  5. CLONIDINE [Concomitant]
     Indication: HYPERTENSION
     Dosage: TTS 3
  6. ACYCLOVIR SODIUM [Concomitant]
  7. ZOSYN [Concomitant]
  8. PROTONIX [Concomitant]
     Indication: GASTROINTESTINAL HAEMORRHAGE
     Dosage: UNKNOWN DOSE, TWICE DAILY
  9. SUCRALFATE [Concomitant]
  10. ENALAPRIL [Concomitant]
     Indication: HYPERTENSION
  11. CYCLOSPORINE [Concomitant]
     Dates: start: 20090102

REACTIONS (1)
  - GASTROINTESTINAL HAEMORRHAGE [None]
